FAERS Safety Report 7363510-3 (Version None)
Quarter: 2011Q1

REPORT INFORMATION
  Report Type: 
  Country: None (occurrence: None)
  Receive Date: 20110321
  Receipt Date: 20110316
  Transmission Date: 20110831
  Serious: No
  Sender: FDA-Public Use
  Company Number: US-TEVA-271817USA

PATIENT
  Sex: Male
  Weight: 86.26 kg

DRUGS (1)
  1. ALBUTEROL SULFATE AUTOHALER [Suspect]
     Indication: UPPER RESPIRATORY TRACT CONGESTION
     Route: 055
     Dates: start: 20110302, end: 20110303

REACTIONS (2)
  - PALPITATIONS [None]
  - DIZZINESS [None]
